FAERS Safety Report 11322165 (Version 3)
Quarter: 2015Q4

REPORT INFORMATION
  Report Type: Spontaneous
  Country: US (occurrence: US)
  Receive Date: 20150729
  Receipt Date: 20151027
  Transmission Date: 20160304
  Serious: Yes (Other)
  Sender: FDA-Public Use
  Company Number: US-BAUSCH-BL-2015-017891

PATIENT
  Age: 66 Year
  Sex: Male

DRUGS (2)
  1. TIMOLOL GEL FORMING SOLUTION [Suspect]
     Active Substance: TIMOLOL
     Indication: BORDERLINE GLAUCOMA
     Route: 047
  2. LUMIGAN [Concomitant]
     Active Substance: BIMATOPROST
     Indication: BORDERLINE GLAUCOMA
     Route: 047

REACTIONS (4)
  - Weight decreased [Recovered/Resolved]
  - Retinal vein occlusion [Recovered/Resolved]
  - Foreign body in eye [Recovered/Resolved]
  - Product container issue [Unknown]

NARRATIVE: CASE EVENT DATE: 2015
